FAERS Safety Report 4309337-8 (Version None)
Quarter: 2004Q1

REPORT INFORMATION
  Report Type: 
  Country: None (occurrence: None)
  Receive Date: 20040302
  Receipt Date: 20040224
  Transmission Date: 20041129
  Serious: Yes (Hospitalization)
  Sender: FDA-Public Use
  Company Number: DE-GLAXOSMITHKLINE-D0043236A

PATIENT
  Age: 66 Year
  Sex: Male

DRUGS (1)
  1. TAGONIS [Suspect]
     Route: 048

REACTIONS (2)
  - COLITIS [None]
  - CROHN'S DISEASE [None]
